FAERS Safety Report 10338458 (Version 2)
Quarter: 2014Q3

REPORT INFORMATION
  Report Type: Spontaneous
  Country: US (occurrence: US)
  Receive Date: 20140724
  Receipt Date: 20140724
  Transmission Date: 20150326
  Serious: Yes (Hospitalization)
  Sender: FDA-Public Use
  Company Number: US-GLAXOSMITHKLINE-A0837859A

PATIENT
  Age: 56 Year
  Sex: Male

DRUGS (1)
  1. ROSIGLITAZONE [Suspect]
     Active Substance: ROSIGLITAZONE
     Indication: PRODUCT USED FOR UNKNOWN INDICATION
     Dosage: 4MG PER DAY
     Route: 048
     Dates: end: 20080419

REACTIONS (1)
  - Cardiac failure congestive [Recovering/Resolving]

NARRATIVE: CASE EVENT DATE: 20080419
